FAERS Safety Report 8536063-1 (Version None)
Quarter: 2012Q3

REPORT INFORMATION
  Report Type: 
  Country: None (occurrence: None)
  Receive Date: 20120725
  Receipt Date: 20120716
  Transmission Date: 20120928
  Serious: Yes (Death)
  Sender: FDA-Public Use
  Company Number: US-BRISTOL-MYERS SQUIBB COMPANY-16679581

PATIENT
  Age: 54 Year
  Sex: Female
  Weight: 83 kg

DRUGS (1)
  1. IPILIMUMAB [Suspect]
     Indication: MALIGNANT MELANOMA
     Dosage: LAST DOSE: 29MAY12,NO OF COURSES:3
     Route: 042
     Dates: start: 20120416

REACTIONS (2)
  - SUDDEN DEATH [None]
  - EMBOLISM [None]
